FAERS Safety Report 25590681 (Version 1)
Quarter: 2025Q3

REPORT INFORMATION
  Report Type: Spontaneous
  Country: US (occurrence: None)
  Receive Date: 20250721
  Receipt Date: 20250721
  Transmission Date: 20251021
  Serious: Yes (Hospitalization)
  Sender: FDA-CTU
  Company Number: None

PATIENT
  Sex: Male

DRUGS (11)
  1. TERIFLUNOMIDE [Suspect]
     Active Substance: TERIFLUNOMIDE
     Indication: Multiple sclerosis
  2. ALBUTEROL AER HFA [Concomitant]
  3. AMITRIPTYLIN TAB 25MG [Concomitant]
  4. AMLOD/VALSAR TAB 10-320MG [Concomitant]
  5. ATORVASTATIN TAB 10MG [Concomitant]
  6. AUBAGIO [Concomitant]
     Active Substance: TERIFLUNOMIDE
  7. CLOTRIM/BETA CREDI PROP [Concomitant]
  8. CYCLOBENZAPRINE HYDROCHLORIDE [Concomitant]
     Active Substance: CYCLOBENZAPRINE HYDROCHLORIDE
  9. DIAZEPAM TAB 5MG [Concomitant]
  10. DOXYCYCL HYC TAB 100MG [Concomitant]
  11. FREESTY LI BR KIT 3 SENSOR [Concomitant]

REACTIONS (4)
  - Multiple sclerosis relapse [None]
  - Product use issue [None]
  - Mobility decreased [None]
  - Fall [None]
